FAERS Safety Report 10022541 (Version 1)
Quarter: 2014Q1

REPORT INFORMATION
  Report Type: Spontaneous
  Country: US (occurrence: US)
  Receive Date: 20140319
  Receipt Date: 20140319
  Transmission Date: 20141002
  Serious: Yes (Life-Threatening, Hospitalization)
  Sender: FDA-Public Use
  Company Number: US-LUNDBECK-DKLU1098217

PATIENT
  Age: 1 Year
  Sex: Female

DRUGS (2)
  1. SABRIL (FOR ORAL SOLUTION) [Suspect]
     Indication: INFANTILE SPASMS
     Route: 048
     Dates: start: 20140205
  2. SABRIL (FOR ORAL SOLUTION) [Suspect]
     Dosage: INCREASE DOSE 150 MG EVERY 3 DAYS BID UNTIL AT 750 MG BID
     Route: 048

REACTIONS (1)
  - Malaise [Not Recovered/Not Resolved]
